FAERS Safety Report 4950322-0 (Version None)
Quarter: 2006Q1

REPORT INFORMATION
  Report Type: 
  Country: None (occurrence: None)
  Receive Date: 20060322
  Receipt Date: 20060102
  Transmission Date: 20060701
  Serious: No
  Sender: FDA-Public Use
  Company Number: PHEH2006US00559

PATIENT

DRUGS (1)
  1. FEMARA [Suspect]
     Route: 064

REACTIONS (1)
  - DRUG EXPOSURE BEFORE PREGNANCY [None]
